FAERS Safety Report 24171741 (Version 1)
Quarter: 2024Q3

REPORT INFORMATION
  Report Type: Report from Study
  Country: US (occurrence: US)
  Receive Date: 20240805
  Receipt Date: 20240805
  Transmission Date: 20241017
  Serious: Yes (Other)
  Sender: TAKEDA
  Company Number: US-TAKEDA-US202000830

PATIENT
  Age: 34 Year
  Sex: Female

DRUGS (5)
  1. VELAGLUCERASE ALFA [Suspect]
     Active Substance: VELAGLUCERASE ALFA
     Indication: Immune system disorder
     Dosage: 3400 INTERNATIONAL UNIT, Q2WEEKS
     Route: 042
     Dates: start: 20171031
  2. VELAGLUCERASE ALFA [Suspect]
     Active Substance: VELAGLUCERASE ALFA
     Indication: Gaucher^s disease
     Dosage: 3400 INTERNATIONAL UNIT, Q2WEEKS
     Route: 042
     Dates: start: 20171101
  3. VELAGLUCERASE ALFA [Suspect]
     Active Substance: VELAGLUCERASE ALFA
     Dosage: 3400 INTERNATIONAL UNIT, Q2WEEKS
     Route: 042
     Dates: start: 20171102
  4. VELAGLUCERASE ALFA [Suspect]
     Active Substance: VELAGLUCERASE ALFA
     Dosage: 3400 INTERNATIONAL UNIT, Q2WEEKS
     Route: 042
     Dates: start: 201711
  5. VELAGLUCERASE ALFA [Suspect]
     Active Substance: VELAGLUCERASE ALFA
     Dosage: 3400 INTERNATIONAL UNIT, Q2WEEKS
     Route: 042

REACTIONS (3)
  - Pneumonia [Unknown]
  - Illness [Unknown]
  - Product dose omission issue [Unknown]

NARRATIVE: CASE EVENT DATE: 20191225
